FAERS Safety Report 4693933-2 (Version None)
Quarter: 2005Q2

REPORT INFORMATION
  Report Type: 
  Country: None (occurrence: None)
  Receive Date: 20050617
  Receipt Date: 20030130
  Transmission Date: 20051028
  Serious: Yes (Hospitalization, Disabling, Other)
  Sender: FDA-Public Use
  Company Number: US-MERCK-0301USA03190

PATIENT
  Age: 70 Year
  Sex: Male
  Weight: 108 kg

DRUGS (15)
  1. VIOXX [Suspect]
     Indication: ARTHRALGIA
     Route: 048
     Dates: start: 20000621, end: 20000727
  2. GOSERELIN [Concomitant]
     Indication: PROSTATE CANCER
     Route: 051
  3. GOSERELIN [Concomitant]
     Route: 051
  4. CASODEX [Concomitant]
     Route: 048
  5. CASODEX [Concomitant]
     Route: 048
  6. ECOTRIN [Concomitant]
     Route: 048
  7. FELODIPINE [Concomitant]
     Route: 048
  8. FLUTICASONE PROPIONATE [Concomitant]
     Route: 055
  9. METOPROLOL [Concomitant]
     Route: 065
  10. RANITIDINE HYDROCHLORIDE [Concomitant]
     Route: 065
  11. ZOCOR [Concomitant]
     Route: 065
  12. WARFARIN [Concomitant]
     Route: 048
  13. MILK OF MAGNESIA TAB [Concomitant]
     Route: 065
  14. DOCUSATE SODIUM [Concomitant]
     Route: 048
  15. HYDROCODONE BITARTRATE [Concomitant]
     Route: 048

REACTIONS (31)
  - ANAEMIA [None]
  - ARTHRALGIA [None]
  - BASAL CELL CARCINOMA [None]
  - BRADYCARDIA [None]
  - BREAST TENDERNESS [None]
  - COMPARTMENT SYNDROME [None]
  - CONSTIPATION [None]
  - COUGH [None]
  - DERMATOPHYTOSIS [None]
  - DIABETES MELLITUS [None]
  - DIABETES MELLITUS INSULIN-DEPENDENT [None]
  - DIALYSIS [None]
  - EMOTIONAL DISTRESS [None]
  - EXTERNAL EAR LESION EXCISION [None]
  - HAEMATOMA [None]
  - HOT FLUSH [None]
  - HYPERGLYCAEMIA [None]
  - HYPERTENSION [None]
  - IMPAIRED WORK ABILITY [None]
  - INFLUENZA [None]
  - INJURY [None]
  - LIMB TRAUMATIC AMPUTATION [None]
  - MUSCULOSKELETAL DISCOMFORT [None]
  - MYOCARDIAL INFARCTION [None]
  - NAIL TINEA [None]
  - NEUROPATHY [None]
  - OEDEMA PERIPHERAL [None]
  - RENAL FAILURE [None]
  - RENAL FAILURE ACUTE [None]
  - SLEEP APNOEA SYNDROME [None]
  - URINARY TRACT INFECTION [None]
